FAERS Safety Report 10189232 (Version 1)
Quarter: 2014Q2

REPORT INFORMATION
  Report Type: Spontaneous
  Country: US (occurrence: None)
  Receive Date: 20140521
  Receipt Date: 20140521
  Transmission Date: 20141212
  Serious: No
  Sender: FDA-Public Use
  Company Number: None

PATIENT
  Age: 72 Year
  Sex: Male

DRUGS (5)
  1. ZYTIGA [Suspect]
     Route: 048
     Dates: start: 20130626
  2. ATENOLOL [Concomitant]
  3. ENALAPRIL [Concomitant]
  4. TAMSULOSIN [Concomitant]
  5. BICALUTAMIDE [Concomitant]

REACTIONS (1)
  - Cerebrovascular accident [None]
